FAERS Safety Report 7000947-6 (Version None)
Quarter: 2010Q3

REPORT INFORMATION
  Report Type: 
  Country: None (occurrence: None)
  Receive Date: 20100920
  Receipt Date: 20100907
  Transmission Date: 20110219
  Serious: Yes (Other)
  Sender: FDA-Public Use
  Company Number: US-JNJCH-2010011286

PATIENT
  Sex: Male
  Weight: 16 kg

DRUGS (5)
  1. CHILDREN'S BENADRYL ALLERGY [Suspect]
     Indication: SWELLING
     Dosage: TEXT:1 TEASPOONFUL 3X A DAY
     Route: 048
     Dates: start: 20100417, end: 20100418
  2. MOTRIN [Suspect]
     Indication: OROPHARYNGEAL PAIN
     Dosage: TEXT:UNKNOWN
     Route: 048
     Dates: start: 20100416, end: 20100418
  3. CHILDREN'S TYLENOL SUSPENSION [Suspect]
     Indication: SWELLING
     Dosage: TEXT:UNKNOWN
     Route: 048
     Dates: start: 20100417, end: 20100417
  4. CEFTRIAXONE [Suspect]
     Indication: PRODUCT USED FOR UNKNOWN INDICATION
     Dosage: TEXT:TWO SHOTS
     Route: 030
  5. AZITHROMYCIN [Suspect]
     Indication: PRODUCT USED FOR UNKNOWN INDICATION
     Dosage: TEXT:FIVE DAY COURSE
     Route: 065

REACTIONS (5)
  - CONDITION AGGRAVATED [None]
  - HYPERSENSITIVITY [None]
  - OFF LABEL USE [None]
  - PRODUCT QUALITY ISSUE [None]
  - WRONG DRUG ADMINISTERED [None]
